FAERS Safety Report 6860249-5 (Version None)
Quarter: 2010Q3

REPORT INFORMATION
  Report Type: 
  Country: None (occurrence: None)
  Receive Date: 20100720
  Receipt Date: 20100707
  Transmission Date: 20110219
  Serious: Yes (Other)
  Sender: FDA-Public Use
  Company Number: PHHY2010US28572

PATIENT
  Sex: Male

DRUGS (4)
  1. AFINITOR [Suspect]
     Indication: RENAL CANCER METASTATIC
     Dosage: 10 MG, QD
     Route: 048
     Dates: start: 20091201
  2. AFINITOR [Suspect]
     Dosage: 20 MG, QD
     Route: 048
  3. AFINITOR [Suspect]
     Dosage: 10 MG, QD
     Route: 048
  4. AFINITOR [Suspect]
     Dosage: 20 MG, QD

REACTIONS (8)
  - BACK PAIN [None]
  - HYPERTENSION [None]
  - ORAL PAIN [None]
  - OROPHARYNGEAL BLISTERING [None]
  - OROPHARYNGEAL PAIN [None]
  - STOMATITIS [None]
  - SWOLLEN TONGUE [None]
  - TONGUE BLISTERING [None]
